FAERS Safety Report 16128617 (Version 2)
Quarter: 2019Q2

REPORT INFORMATION
  Report Type: Spontaneous
  Country: DE (occurrence: DE)
  Receive Date: 20190328
  Receipt Date: 20190402
  Transmission Date: 20190711
  Serious: Yes (Life-Threatening, Hospitalization, Other)
  Sender: FDA-Public Use
  Company Number: DE-ABBVIE-19S-062-2720533-00

PATIENT
  Age: 67 Year
  Sex: Male

DRUGS (3)
  1. COMBIVIR [Suspect]
     Active Substance: LAMIVUDINE\ZIDOVUDINE
     Indication: HIV INFECTION
     Dosage: 1 DF(TABLET), BID
     Route: 065
     Dates: start: 201112
  2. NORVIR [Suspect]
     Active Substance: RITONAVIR
     Indication: HIV INFECTION
     Dosage: UNK UNK, BID
     Route: 048
     Dates: start: 200601
  3. PREZISTA [Suspect]
     Active Substance: DARUNAVIR ETHANOLATE
     Indication: HIV INFECTION
     Dosage: 600 MG, BID
     Route: 065

REACTIONS (9)
  - Chills [Unknown]
  - Haemolytic anaemia [Recovered/Resolved with Sequelae]
  - General physical health deterioration [Unknown]
  - Pyrexia [Recovered/Resolved with Sequelae]
  - Malaria [Recovered/Resolved with Sequelae]
  - Altered state of consciousness [Unknown]
  - Proteinuria [Recovered/Resolved with Sequelae]
  - Acute kidney injury [Unknown]
  - Thrombocytopenia [Unknown]

NARRATIVE: CASE EVENT DATE: 20111201
